FAERS Safety Report 21761065 (Version 1)
Quarter: 2022Q4

REPORT INFORMATION
  Report Type: Spontaneous
  Country: US (occurrence: None)
  Receive Date: 20221221
  Receipt Date: 20221221
  Transmission Date: 20230112
  Serious: No
  Sender: FDA-Public Use
  Company Number: None

PATIENT
  Age: 20 Year
  Sex: Male
  Weight: 87.75 kg

DRUGS (1)
  1. METHYLPREDNISOLONE [Suspect]
     Active Substance: METHYLPREDNISOLONE
     Indication: Back injury
     Dosage: OTHER QUANTITY : 21 TABLET(S);?OTHER FREQUENCY : 6 TIMES A DAY;?
     Route: 048
     Dates: start: 20221209, end: 20221211

REACTIONS (2)
  - Pruritus [None]
  - Hyperhidrosis [None]

NARRATIVE: CASE EVENT DATE: 20221212
